FAERS Safety Report 23302426 (Version 1)
Quarter: 2023Q4

REPORT INFORMATION
  Report Type: Spontaneous
  Country: CA (occurrence: None)
  Receive Date: 20231215
  Receipt Date: 20231215
  Transmission Date: 20240109
  Serious: Yes (Hospitalization, Disabling)
  Sender: FDA-Public Use
  Company Number: None

PATIENT
  Age: 31 Year
  Sex: Female
  Weight: 65 kg

DRUGS (1)
  1. MIRENA [Suspect]
     Active Substance: LEVONORGESTREL

REACTIONS (9)
  - Pelvic pain [None]
  - Mental disorder [None]
  - Panic attack [None]
  - Weight increased [None]
  - Fatigue [None]
  - Insomnia [None]
  - Abnormal dreams [None]
  - Fatigue [None]
  - Device dislocation [None]

NARRATIVE: CASE EVENT DATE: 20230830
